FAERS Safety Report 12680444 (Version 2)
Quarter: 2016Q3

REPORT INFORMATION
  Report Type: Spontaneous
  Country: None (occurrence: US)
  Receive Date: 20160824
  Receipt Date: 20160831
  Transmission Date: 20161109
  Serious: No
  Sender: FDA-Public Use
  Company Number: US-MERZ NORTH AMERICA, INC.-16MRZ-00507

PATIENT
  Age: 32 Year
  Sex: Female
  Weight: 52.21 kg

DRUGS (1)
  1. XEOMIN [Suspect]
     Active Substance: INCOBOTULINUMTOXINA
     Dates: start: 20160818

REACTIONS (1)
  - Injection site swelling [Unknown]
